FAERS Safety Report 6644172-7 (Version None)
Quarter: 2010Q1

REPORT INFORMATION
  Report Type: 
  Country: None (occurrence: None)
  Receive Date: 20100322
  Receipt Date: 20100319
  Transmission Date: 20100710
  Serious: Yes (Life-Threatening, Other)
  Sender: FDA-Public Use
  Company Number: PHHY2010PT16912

PATIENT
  Age: 83 Year
  Sex: Female

DRUGS (4)
  1. EXELON [Suspect]
     Indication: DEMENTIA ALZHEIMER'S TYPE
     Dosage: UNK
  2. TRAZODONE HYDROCHLORIDE [Interacting]
     Dosage: 100 MG, UNK
  3. ACETYLSALICYLIC ACID SRT [Concomitant]
     Dosage: 150 MG, UNK
  4. LORAZEPAM [Concomitant]
     Route: 048

REACTIONS (5)
  - CIRCULATORY COLLAPSE [None]
  - DRUG INTERACTION [None]
  - DYSPNOEA [None]
  - HYPOTENSION [None]
  - SYNCOPE [None]
